FAERS Safety Report 8887953 (Version 1)
Quarter: 2012Q4

REPORT INFORMATION
  Report Type: 
  Country: US (occurrence: US)
  Receive Date: 20121106
  Receipt Date: 20121106
  Transmission Date: 20130627
  Serious: Yes (Hospitalization, Other)
  Sender: FDA-Public Use
  Company Number: US-ELI_LILLY_AND_COMPANY-US201210009645

PATIENT
  Age: 56 None
  Sex: Male
  Weight: 185 kg

DRUGS (4)
  1. CIALIS [Suspect]
     Indication: SEXUAL DYSFUNCTION
     Dosage: 1 DF, unknown
  2. VIAGRA [Concomitant]
     Indication: SEXUAL DYSFUNCTION
     Dosage: 50 mg, prn
     Dates: start: 2009
  3. CRESTOR [Concomitant]
     Indication: BLOOD PRESSURE
     Dosage: 1 DF, unknown
  4. TRAMADOL [Concomitant]
     Indication: NEUROPATHY PERIPHERAL
     Dosage: 50 mg, prn

REACTIONS (8)
  - Surgery [Unknown]
  - Surgery [Unknown]
  - Neuropathy peripheral [Unknown]
  - Micturition disorder [Unknown]
  - Weight decreased [Unknown]
  - Drug ineffective [Unknown]
  - Surgery [Unknown]
  - Bladder disorder [Unknown]
